FAERS Safety Report 17721433 (Version 1)
Quarter: 2020Q2

REPORT INFORMATION
  Report Type: Spontaneous
  Country: CN (occurrence: CN)
  Receive Date: 20200429
  Receipt Date: 20200429
  Transmission Date: 20200714
  Serious: Yes (Other)
  Sender: FDA-Public Use
  Company Number: CN-ROCHE-2589315

PATIENT
  Age: 61 Year
  Sex: Male
  Weight: 45 kg

DRUGS (3)
  1. XELODA [Suspect]
     Active Substance: CAPECITABINE
     Route: 065
     Dates: start: 20181011
  2. XELODA [Suspect]
     Active Substance: CAPECITABINE
     Indication: GASTRIC CANCER
     Route: 065
     Dates: start: 20180515
  3. OXALIPLATIN. [Concomitant]
     Active Substance: OXALIPLATIN
     Indication: GASTRIC CANCER
     Route: 065
     Dates: start: 20180515

REACTIONS (4)
  - Mouth ulceration [Unknown]
  - Diarrhoea [Unknown]
  - Mesenteric artery embolism [Unknown]
  - Ileus [Unknown]
